FAERS Safety Report 15547738 (Version 1)
Quarter: 2018Q4

REPORT INFORMATION
  Report Type: Spontaneous
  Country: US (occurrence: US)
  Receive Date: 20181024
  Receipt Date: 20181024
  Transmission Date: 20190205
  Serious: Yes (Hospitalization)
  Sender: FDA-Public Use
  Company Number: US-009507513-1810USA007253

PATIENT
  Age: 32 Year
  Sex: Female

DRUGS (1)
  1. INTRON A [Suspect]
     Active Substance: INTERFERON ALFA-2B
     Indication: CHRONIC MYELOID LEUKAEMIA
     Dosage: 0.4 ML, Q5W, 10 MM UNIT SDV WITH DILUENT
     Route: 058
     Dates: start: 201803

REACTIONS (1)
  - Adverse event [Unknown]

NARRATIVE: CASE EVENT DATE: 20181007
